FAERS Safety Report 6571912-8 (Version None)
Quarter: 2010Q1

REPORT INFORMATION
  Report Type: 
  Country: None (occurrence: None)
  Receive Date: 20100205
  Receipt Date: 20100127
  Transmission Date: 20100710
  Serious: Yes (Other)
  Sender: FDA-Public Use
  Company Number: US-JNJFOC-20091106080

PATIENT
  Sex: Female
  Weight: 87.09 kg

DRUGS (9)
  1. REMICADE [Suspect]
     Indication: COLITIS ULCERATIVE
     Route: 042
  2. REMICADE [Suspect]
     Route: 042
  3. REMICADE [Suspect]
     Route: 042
  4. FLAGYL [Suspect]
     Indication: DRUG USE FOR UNKNOWN INDICATION
  5. LIALDA [Concomitant]
  6. ALESSE [Concomitant]
  7. LEXAPRO [Concomitant]
  8. M.V.I. [Concomitant]
  9. CALCIUM [Concomitant]

REACTIONS (3)
  - AMNESIA [None]
  - ARTHRALGIA [None]
  - DEMYELINATING POLYNEUROPATHY [None]
